FAERS Safety Report 9801352 (Version 1)
Quarter: 2014Q1

REPORT INFORMATION
  Report Type: Spontaneous
  Country: US (occurrence: US)
  Receive Date: 20140107
  Receipt Date: 20140107
  Transmission Date: 20141002
  Serious: No
  Sender: FDA-Public Use
  Company Number: US-GLAXOSMITHKLINE-A1048069A

PATIENT
  Age: 29 Year
  Sex: Male

DRUGS (3)
  1. BENLYSTA [Suspect]
     Indication: SYSTEMIC LUPUS ERYTHEMATOSUS
     Dosage: 120MG CYCLIC
     Route: 065
     Dates: start: 20130927, end: 20131018
  2. ALLERGY MEDICATION [Concomitant]
  3. HEADACHE MEDICATION [Concomitant]

REACTIONS (7)
  - Infusion related reaction [Unknown]
  - Nervousness [Unknown]
  - Pallor [Unknown]
  - Pyrexia [Unknown]
  - Flushing [Unknown]
  - Headache [Unknown]
  - Somnolence [Unknown]
